FAERS Safety Report 4898291-6 (Version None)
Quarter: 2006Q1

REPORT INFORMATION
  Report Type: 
  Country: None (occurrence: None)
  Receive Date: 20060127
  Receipt Date: 20060119
  Transmission Date: 20060701
  Serious: Yes (Life-Threatening, Other)
  Sender: FDA-Public Use
  Company Number: USA-2006-0023156

PATIENT
  Age: 54 Year
  Sex: Male

DRUGS (1)
  1. OXYCONTIN [Suspect]
     Indication: RHEUMATOID ARTHRITIS

REACTIONS (4)
  - DRUG WITHDRAWAL SYNDROME [None]
  - PAIN [None]
  - UNEVALUABLE EVENT [None]
  - WEIGHT DECREASED [None]
